FAERS Safety Report 11175118 (Version 1)
Quarter: 2015Q2

REPORT INFORMATION
  Report Type: Spontaneous
  Country: US (occurrence: US)
  Receive Date: 20150609
  Receipt Date: 20150609
  Transmission Date: 20150821
  Serious: No
  Sender: FDA-Public Use
  Company Number: US-BAYER-2015-319522

PATIENT
  Age: 83 Year
  Sex: Female
  Weight: 72 kg

DRUGS (6)
  1. CLARITIN-D 24 HOUR [Suspect]
     Active Substance: LORATADINE\PSEUDOEPHEDRINE SULFATE
     Indication: SEASONAL ALLERGY
     Dosage: 1 DF, ONCE
     Route: 048
     Dates: start: 20150606, end: 20150606
  2. COUMADIN [Concomitant]
     Active Substance: WARFARIN SODIUM
  3. FENOFIBRATE. [Concomitant]
     Active Substance: FENOFIBRATE
  4. VITAMIN D [Concomitant]
     Active Substance: CHOLECALCIFEROL
  5. ENALAPRIL [Concomitant]
     Active Substance: ENALAPRIL
  6. METOPROLOL [Concomitant]
     Active Substance: METOPROLOL

REACTIONS (3)
  - Nausea [Recovered/Resolved]
  - Vision blurred [Recovered/Resolved]
  - Dizziness [Recovered/Resolved]

NARRATIVE: CASE EVENT DATE: 20150606
